FAERS Safety Report 4769900-7 (Version None)
Quarter: 2005Q3

REPORT INFORMATION
  Report Type: 
  Country: None (occurrence: None)
  Receive Date: 20050908
  Receipt Date: 20050629
  Transmission Date: 20060218
  Serious: Yes (Hospitalization)
  Sender: FDA-Public Use
  Company Number: A03200501091

PATIENT
  Age: 71 Year
  Sex: Male
  Weight: 74.8435 kg

DRUGS (5)
  1. ELOXATIN [Suspect]
     Indication: COLON CANCER
     Dosage: 200 MG Q2W - INTRAVENOUS NOS
     Route: 042
     Dates: start: 20040101, end: 20040101
  2. FLUOROURACIL [Concomitant]
  3. LEUCOVORIN [Concomitant]
  4. TELMISARTAN [Concomitant]
  5. CARVEDILOL [Concomitant]

REACTIONS (6)
  - DEHYDRATION [None]
  - DISCOMFORT [None]
  - HYPOAESTHESIA [None]
  - PERIPHERAL SENSORY NEUROPATHY [None]
  - PLATELET COUNT DECREASED [None]
  - WHITE BLOOD CELL COUNT DECREASED [None]
